FAERS Safety Report 10566045 (Version 1)
Quarter: 2014Q4

REPORT INFORMATION
  Report Type: Spontaneous
  Country: FR (occurrence: FR)
  Receive Date: 20141105
  Receipt Date: 20141105
  Transmission Date: 20150529
  Serious: Yes (Hospitalization)
  Sender: FDA-Public Use
  Company Number: FR-SA-2014SA149852

PATIENT
  Age: 68 Year
  Sex: Female

DRUGS (3)
  1. FLUOROURACIL. [Suspect]
     Active Substance: FLUOROURACIL
     Indication: HEPATIC CANCER
     Route: 042
     Dates: start: 20110112, end: 20140924
  2. ZALTRAP [Suspect]
     Active Substance: ZIV-AFLIBERCEPT
     Indication: HEPATIC CANCER
     Route: 042
     Dates: start: 20140924, end: 20140924
  3. CAMPTO [Suspect]
     Active Substance: IRINOTECAN
     Indication: HEPATIC CANCER
     Route: 042
     Dates: start: 2011, end: 20140924

REACTIONS (2)
  - Rectal haemorrhage [Recovering/Resolving]
  - Colitis ischaemic [Recovering/Resolving]

NARRATIVE: CASE EVENT DATE: 20140926
